FAERS Safety Report 10388631 (Version 1)
Quarter: 2014Q3

REPORT INFORMATION
  Report Type: Spontaneous
  Country: BR (occurrence: BR)
  Receive Date: 20140815
  Receipt Date: 20140815
  Transmission Date: 20150326
  Serious: Yes (Other)
  Sender: FDA-Public Use
  Company Number: BR-PFIZER INC-2014225068

PATIENT
  Age: 66 Year
  Sex: Female
  Weight: 67 kg

DRUGS (4)
  1. TIMOLOL [Concomitant]
     Active Substance: TIMOLOL
     Indication: GLAUCOMA
     Dosage: ONE DROP IN THE RIGHT EYE, 2X/DAY
     Route: 047
     Dates: start: 201407
  2. XALATAN [Suspect]
     Active Substance: LATANOPROST
     Dosage: ONE DROP IN EACH EYE, 3X/DAY
     Route: 047
     Dates: start: 201407
  3. XALATAN [Suspect]
     Active Substance: LATANOPROST
     Indication: RETINAL VASCULAR THROMBOSIS
     Dosage: ONE DROP IN EACH EYE, 4X/DAY
     Route: 047
     Dates: start: 201406, end: 20140707
  4. PRED FORT [Concomitant]
     Indication: RETINAL VASCULAR THROMBOSIS
     Dosage: ONE DROP IN THE LEFT EYE, 2X/DAY
     Route: 047
     Dates: start: 201406

REACTIONS (2)
  - Off label use [Unknown]
  - Thrombosis [Unknown]
